FAERS Safety Report 4797456-1 (Version None)
Quarter: 2005Q4

REPORT INFORMATION
  Report Type: 
  Country: None (occurrence: None)
  Receive Date: 20051013
  Receipt Date: 20051007
  Transmission Date: 20060501
  Serious: Yes (Other)
  Sender: FDA-Public Use
  Company Number: US-BRISTOL-MYERS SQUIBB COMPANY-13138136

PATIENT
  Age: 47 Year
  Sex: Male
  Weight: 93 kg

DRUGS (5)
  1. ERBITUX [Suspect]
     Dosage: LOADING DOSE, 812 MG/250 ML FLUID. STOPPED AFTER APPROX. 5 ML.
     Route: 042
     Dates: start: 20051007, end: 20051007
  2. TYLENOL (CAPLET) [Concomitant]
     Indication: PREMEDICATION
     Dates: start: 20051007, end: 20051007
  3. BENADRYL [Concomitant]
     Indication: PREMEDICATION
     Dates: start: 20051007, end: 20051007
  4. OXYCODONE HCL [Concomitant]
  5. OXYCONTIN [Concomitant]

REACTIONS (7)
  - CARDIO-RESPIRATORY ARREST [None]
  - CONVULSION [None]
  - GRAND MAL CONVULSION [None]
  - HYPOTENSION [None]
  - LOSS OF CONSCIOUSNESS [None]
  - MUSCLE TIGHTNESS [None]
  - RETCHING [None]
